FAERS Safety Report 7496046-X (Version None)
Quarter: 2011Q2

REPORT INFORMATION
  Report Type: 
  Country: None (occurrence: None)
  Receive Date: 20110520
  Receipt Date: 20110520
  Transmission Date: 20111010
  Serious: No
  Sender: FDA-Public Use
  Company Number: None

PATIENT
  Age: 85 Year
  Sex: Male

DRUGS (1)
  1. LATANOPROST [Suspect]
     Dosage: INSTILL ONE DROP IN EACH EYE AT BEDTIME
     Route: 047
     Dates: start: 20110510, end: 20110512

REACTIONS (3)
  - VISUAL IMPAIRMENT [None]
  - PRODUCT SUBSTITUTION ISSUE [None]
  - EYE IRRITATION [None]
